FAERS Safety Report 8458824 (Version 4)
Quarter: 2014Q1

REPORT INFORMATION
  Report Type: Report from Study
  Country: US (occurrence: US)
  Receive Date: 20120314
  Receipt Date: 20140224
  Transmission Date: 20141002
  Serious: Yes (Hospitalization, Other)
  Sender: FDA-Public Use
  Company Number: US-ACTELION-A-US2012-62274

PATIENT
  Age: 78 Year
  Sex: Female

DRUGS (2)
  1. TRACLEER [Suspect]
     Indication: PULMONARY ARTERIAL HYPERTENSION
     Dosage: UNK
     Route: 048
  2. PROPAFENONE [Concomitant]

REACTIONS (3)
  - Sick sinus syndrome [Recovering/Resolving]
  - Atrial fibrillation [Recovering/Resolving]
  - Palpitations [Unknown]
